FAERS Safety Report 5684560-9 (Version None)
Quarter: 2008Q1

REPORT INFORMATION
  Report Type: 
  Country: None (occurrence: None)
  Receive Date: 20080328
  Receipt Date: 20070209
  Transmission Date: 20080703
  Serious: Yes (Other)
  Sender: FDA-Public Use
  Company Number: US-BRISTOL-MYERS SQUIBB COMPANY-13675723

PATIENT
  Sex: Male

DRUGS (2)
  1. ERBITUX [Suspect]
     Indication: COLORECTAL CANCER METASTATIC
     Dosage: LOT#: 06C00599B EXP DATE: 10/09, 06C00512B EXP DATE: 9/09, 06000515 10/09, 06000665 11/09
     Route: 042
     Dates: start: 20070207, end: 20070207
  2. BENADRYL [Concomitant]
     Indication: PREMEDICATION
     Route: 042
     Dates: start: 20070207, end: 20070207

REACTIONS (2)
  - CHEST DISCOMFORT [None]
  - DYSPNOEA [None]
